FAERS Safety Report 21129357 (Version 1)
Quarter: 2022Q3

REPORT INFORMATION
  Report Type: Report from Study
  Country: CA (occurrence: CA)
  Receive Date: 20220725
  Receipt Date: 20220725
  Transmission Date: 20221026
  Serious: Yes (Other)
  Sender: FDA-Public Use
  Company Number: CA-ABBVIE-22K-028-4478707-00

PATIENT
  Sex: Female

DRUGS (1)
  1. HUMIRA [Suspect]
     Active Substance: ADALIMUMAB
     Indication: Hidradenitis
     Route: 058
     Dates: start: 20201221

REACTIONS (3)
  - Breast cyst [Recovering/Resolving]
  - Inflammation [Recovering/Resolving]
  - Genital cyst [Unknown]

NARRATIVE: CASE EVENT DATE: 20220101
